FAERS Safety Report 11770713 (Version 5)
Quarter: 2016Q1

REPORT INFORMATION
  Report Type: Spontaneous
  Country: GB (occurrence: GB)
  Receive Date: 20151123
  Receipt Date: 20160222
  Transmission Date: 20160525
  Serious: Yes (Hospitalization, Other)
  Sender: FDA-Public Use
  Company Number: GB-AMGEN-GBRSP2015107207

PATIENT
  Age: 58 Year
  Sex: Female

DRUGS (9)
  1. 5-FU                               /00098801/ [Concomitant]
     Active Substance: FLUOROURACIL
     Dosage: UNK
     Dates: start: 20151215
  2. NEULASTA [Suspect]
     Active Substance: PEGFILGRASTIM
     Indication: PRODUCT USED FOR UNKNOWN INDICATION
     Dosage: UNK
     Route: 065
     Dates: start: 20151218
  3. OXALIPLATIN. [Concomitant]
     Active Substance: OXALIPLATIN
     Dosage: UNK
     Dates: start: 20151215
  4. REGORAFENIB [Concomitant]
     Active Substance: REGORAFENIB
     Dosage: UNK
  5. NITROFURANTOIN. [Concomitant]
     Active Substance: NITROFURANTOIN
     Indication: PROPHYLAXIS URINARY TRACT INFECTION
     Dosage: UNK, AT NIGHT
  6. FOLINIC ACID [Concomitant]
     Active Substance: LEUCOVORIN
     Dosage: UNK
     Dates: start: 20151215
  7. AVASTIN [Concomitant]
     Active Substance: BEVACIZUMAB
     Dosage: UNK
     Dates: start: 20151215
  8. CLARITHROMYCIN. [Concomitant]
     Active Substance: CLARITHROMYCIN
     Dosage: UNK
  9. METOCLOPRAMIDE. [Concomitant]
     Active Substance: METOCLOPRAMIDE
     Dosage: UNK

REACTIONS (17)
  - Urostomy [Unknown]
  - Diarrhoea [Unknown]
  - Urinary tract infection [Unknown]
  - Vomiting [Not Recovered/Not Resolved]
  - Feeding disorder [Unknown]
  - Fluid intake reduced [Unknown]
  - Pyrexia [Unknown]
  - Nausea [Unknown]
  - Back pain [Unknown]
  - Rash morbilliform [Unknown]
  - Fatigue [Unknown]
  - Blood glucose increased [Unknown]
  - Abdominal pain [Unknown]
  - Malaise [Unknown]
  - Cough [Unknown]
  - Chills [Unknown]
  - Asthenia [Unknown]

NARRATIVE: CASE EVENT DATE: 201602
